FAERS Safety Report 6140095-0 (Version None)
Quarter: 2009Q1

REPORT INFORMATION
  Report Type: 
  Country: None (occurrence: None)
  Receive Date: 20090324
  Receipt Date: 20090319
  Transmission Date: 20090719
  Serious: Yes (Hospitalization)
  Sender: FDA-Public Use
  Company Number: GXKR2009FI03731

PATIENT
  Age: 85 Year
  Sex: Female

DRUGS (10)
  1. SIMVASTATIN [Suspect]
     Indication: HYPERCHOLESTEROLAEMIA
     Dosage: 40 MG, QD, ORAL
     Route: 048
     Dates: start: 20090124, end: 20090305
  2. FURESIS (FUROSEMIDE) [Concomitant]
  3. NOVOMIX (INSULIN ASPART) [Concomitant]
  4. RAMIPRIL [Concomitant]
  5. BISOPROLOL FUMARATE [Concomitant]
  6. NITROSID - SLOW RELEASE (ISOSORBIDE DINITRATE) [Concomitant]
  7. PLAVIX [Concomitant]
  8. PRIMASPAN (ACETYLSALICYLIC ACID) [Concomitant]
  9. NEXIUM [Concomitant]
  10. VAGIFEM [Concomitant]

REACTIONS (5)
  - ALANINE AMINOTRANSFERASE INCREASED [None]
  - BLOOD CREATININE INCREASED [None]
  - GLYCOSYLATED HAEMOGLOBIN INCREASED [None]
  - RHABDOMYOLYSIS [None]
  - URINARY TRACT INFECTION [None]
